FAERS Safety Report 7470418-1 (Version None)
Quarter: 2011Q2

REPORT INFORMATION
  Report Type: 
  Country: None (occurrence: None)
  Receive Date: 20110510
  Receipt Date: 20110414
  Transmission Date: 20111010
  Serious: Yes (Hospitalization, Other)
  Sender: FDA-Public Use
  Company Number: US-BAYER-201032762NA

PATIENT
  Age: 30 Year
  Sex: Female
  Weight: 65.76 kg

DRUGS (6)
  1. FLUCONAZOLE [Concomitant]
     Indication: ANTIFUNGAL TREATMENT
     Dosage: 150 MG, ONCE
     Dates: start: 20071203
  2. YAZ [Suspect]
     Indication: ORAL CONTRACEPTION
     Dosage: UNK UNK, UNK
     Route: 048
     Dates: start: 20070101, end: 20071215
  3. CHERATUSSIN AC [Concomitant]
     Indication: ANTITUSSIVE THERAPY
     Dosage: 1 TSP EVERY 4 HRS AS NEEDED
     Dates: start: 20071203
  4. LEVAQUIN [Concomitant]
     Indication: ANTIBIOTIC THERAPY
     Dosage: 500 MF TAB, QD
     Dates: start: 20071203
  5. BENZONATATE [Concomitant]
     Indication: ANTITUSSIVE THERAPY
     Dosage: 100 MG, TID
     Dates: start: 20071203
  6. MUCINEX [Concomitant]

REACTIONS (13)
  - CHEST PAIN [None]
  - HAEMOPTYSIS [None]
  - PULMONARY EMBOLISM [None]
  - DYSPNOEA [None]
  - FALL [None]
  - DEEP VEIN THROMBOSIS [None]
  - MALAISE [None]
  - BACK PAIN [None]
  - NON-CARDIAC CHEST PAIN [None]
  - BRONCHITIS [None]
  - COLD SWEAT [None]
  - MUSCULOSKELETAL PAIN [None]
  - DIZZINESS [None]
